FAERS Safety Report 12262452 (Version 2)
Quarter: 2016Q2

REPORT INFORMATION
  Report Type: Report from Study
  Country: US (occurrence: US)
  Receive Date: 20160413
  Receipt Date: 20160502
  Transmission Date: 20160815
  Serious: Yes (Hospitalization)
  Sender: FDA-Public Use
  Company Number: US-BEH-2016061013

PATIENT
  Sex: Female
  Weight: 58 kg

DRUGS (16)
  1. MULTIVITAMINS [Concomitant]
     Active Substance: VITAMINS
  2. DIPHENHYDRAMINE. [Concomitant]
     Active Substance: DIPHENHYDRAMINE
  3. ZEMAIRA [Suspect]
     Active Substance: .ALPHA.1-PROTEINASE INHIBITOR HUMAN
     Indication: ALPHA-1 ANTI-TRYPSIN DEFICIENCY
     Route: 042
     Dates: start: 20131206
  4. DEXTROSE. [Concomitant]
     Active Substance: DEXTROSE
  5. SODIUM CHLORIDE. [Concomitant]
     Active Substance: SODIUM CHLORIDE
  6. COLACE [Concomitant]
     Active Substance: DOCUSATE SODIUM
  7. ASPIRIN. [Concomitant]
     Active Substance: ASPIRIN
  8. ZANTAC [Concomitant]
     Active Substance: RANITIDINE HYDROCHLORIDE
  9. CALCIUM-MAGNESIUM [Concomitant]
     Active Substance: CALCIUM\MAGNESIUM
  10. NALTREXONE [Concomitant]
     Active Substance: NALTREXONE
  11. HEPARIN [Concomitant]
     Active Substance: HEPARIN SODIUM
  12. EPIPEN [Concomitant]
     Active Substance: EPINEPHRINE
  13. GAMUNEX [Concomitant]
     Active Substance: HUMAN IMMUNOGLOBULIN G
  14. ACETAMINOPHEN. [Concomitant]
     Active Substance: ACETAMINOPHEN
  15. IBUPROFEN. [Concomitant]
     Active Substance: IBUPROFEN
  16. PROTONIX [Concomitant]
     Active Substance: PANTOPRAZOLE SODIUM

REACTIONS (1)
  - Hypersensitivity [Unknown]
